FAERS Safety Report 24817124 (Version 1)
Quarter: 2025Q1

REPORT INFORMATION
  Report Type: Spontaneous
  Country: FR (occurrence: FR)
  Receive Date: 20250108
  Receipt Date: 20250108
  Transmission Date: 20250408
  Serious: Yes (Hospitalization)
  Sender: ABBVIE
  Company Number: None

PATIENT
  Age: 35 Year
  Sex: Male
  Weight: 85 kg

DRUGS (2)
  1. RINVOQ [Suspect]
     Active Substance: UPADACITINIB
     Indication: Crohn^s disease
     Dosage: RINVOQ 45 MG, EXTENDED RELEASE TABLET, UPADACITINIB HEMIHYDRATE, 45 MG AS INITIAL TREATMENT THEN ...
     Route: 048
     Dates: start: 20240409, end: 20240626
  2. RINVOQ [Suspect]
     Active Substance: UPADACITINIB
     Indication: Crohn^s disease
     Dosage: RINVOQ 45 MG, EXTENDED RELEASE TABLET, UPADACITINIB HEMIHYDRATE, 445 MG AS INITIAL TREATMENT THEN...
     Route: 048
     Dates: start: 20240627, end: 20240928

REACTIONS (1)
  - Large intestine perforation [Recovered/Resolved]

NARRATIVE: CASE EVENT DATE: 20240916
